FAERS Safety Report 7968785-5 (Version None)
Quarter: 2011Q4

REPORT INFORMATION
  Report Type: 
  Country: None (occurrence: None)
  Receive Date: 20111209
  Receipt Date: 20101125
  Transmission Date: 20120403
  Serious: Yes (Other)
  Sender: FDA-Public Use
  Company Number: CA-ELI_LILLY_AND_COMPANY-CA201011006960

PATIENT
  Age: 62 Year
  Sex: Female

DRUGS (15)
  1. IRON [Concomitant]
  2. SYNTHROID [Concomitant]
  3. CORTEF [Concomitant]
  4. MULTI-VITAMIN [Concomitant]
  5. BIAXIN [Concomitant]
  6. VITAMIN B-12 [Concomitant]
  7. VITAMIN D [Concomitant]
  8. NEXIUM [Concomitant]
  9. ADVAIR DISKUS 100/50 [Concomitant]
  10. ALVESCO [Concomitant]
  11. NOVO-HYDRAZIDE [Concomitant]
  12. FORTEO [Suspect]
     Indication: OSTEOPOROSIS
     Dosage: 20 UG, DAILY (1/D)
     Route: 058
     Dates: start: 20100513
  13. LACTAID [Concomitant]
  14. ESTRACE [Concomitant]
  15. CALCIUM [Concomitant]

REACTIONS (1)
  - THROMBOSIS [None]
